FAERS Safety Report 8318564-4 (Version None)
Quarter: 2012Q2

REPORT INFORMATION
  Report Type: 
  Country: None (occurrence: None)
  Receive Date: 20120427
  Receipt Date: 20120418
  Transmission Date: 20120825
  Serious: Yes (Other)
  Sender: FDA-Public Use
  Company Number: US-ELI_LILLY_AND_COMPANY-US201204006923

PATIENT
  Sex: Female

DRUGS (8)
  1. PERPHENAZINE [Concomitant]
     Dosage: UNK, UNKNOWN
     Route: 065
  2. XANAX [Concomitant]
     Dosage: UNK, UNKNOWN
     Route: 065
  3. RANITIDINE [Concomitant]
     Dosage: UNK, UNKNOWN
     Route: 065
  4. GLYBURIDE [Concomitant]
     Dosage: UNK, UNKNOWN
     Route: 065
  5. CYMBALTA [Suspect]
     Dosage: UNK, UNKNOWN
     Route: 065
  6. PROPRANOLOL [Concomitant]
     Dosage: UNK, UNKNOWN
     Route: 065
  7. SIMVASTATIN [Concomitant]
     Dosage: UNK, UNKNOWN
     Route: 065
  8. METFORMIN HCL [Concomitant]
     Dosage: UNK, UNKNOWN
     Route: 065

REACTIONS (1)
  - COLECTOMY [None]
